FAERS Safety Report 14133847 (Version 1)
Quarter: 2017Q4

REPORT INFORMATION
  Report Type: Spontaneous
  Country: US (occurrence: US)
  Receive Date: 20171026
  Receipt Date: 20171026
  Transmission Date: 20180321
  Serious: No
  Sender: FDA-Public Use
  Company Number: US-BAUSCH-BL-2017-026159

PATIENT
  Age: 67 Year
  Sex: Male

DRUGS (2)
  1. JUBLIA [Suspect]
     Active Substance: EFINACONAZOLE
     Indication: ONYCHOMYCOSIS
     Dosage: STARTED AROUND JAN OR FEB OF 2016?AS RECOMMENDED
     Route: 061
     Dates: start: 2016, end: 201704
  2. NAFTIN [Concomitant]
     Active Substance: NAFTIFINE HYDROCHLORIDE
     Indication: ONYCHOMYCOSIS
     Route: 061

REACTIONS (2)
  - Drug effect incomplete [Unknown]
  - Incorrect drug administration duration [Unknown]
